FAERS Safety Report 5511879-4 (Version None)
Quarter: 2007Q4

REPORT INFORMATION
  Report Type: 
  Country: None (occurrence: None)
  Receive Date: 20071109
  Receipt Date: 20071029
  Transmission Date: 20080405
  Serious: Yes (Hospitalization, Other)
  Sender: FDA-Public Use
  Company Number: JP-PFIZER INC-2007091489

PATIENT
  Age: 39 Year
  Sex: Female

DRUGS (5)
  1. SALAZOPYRIN [Suspect]
     Indication: COLITIS ULCERATIVE
     Dosage: DAILY DOSE:3GRAM
     Route: 048
     Dates: start: 19980301, end: 20070913
  2. KLARICID [Suspect]
     Route: 048
     Dates: start: 20070912, end: 20070913
  3. TRANSAMIN [Suspect]
     Route: 048
     Dates: start: 20070912, end: 20070913
  4. HERBAL PREPARATION [Suspect]
     Route: 048
     Dates: start: 20070912, end: 20070913
  5. CALONAL [Suspect]
     Route: 048
     Dates: start: 20070912, end: 20070913

REACTIONS (3)
  - ERYTHEMA MULTIFORME [None]
  - OCULOMUCOCUTANEOUS SYNDROME [None]
  - PHARYNGITIS [None]
